FAERS Safety Report 11550793 (Version 1)
Quarter: 2015Q3

REPORT INFORMATION
  Report Type: Spontaneous
  Country: US (occurrence: US)
  Receive Date: 20150903
  Receipt Date: 20150903
  Transmission Date: 20151125
  Serious: No
  Sender: FDA-Public Use
  Company Number: US-ELI_LILLY_AND_COMPANY-US201209003216

PATIENT
  Sex: Male

DRUGS (6)
  1. FUROSEMIDE. [Concomitant]
     Active Substance: FUROSEMIDE
     Dosage: UNK
  2. HUMALOG [Suspect]
     Active Substance: INSULIN LISPRO
     Dosage: UNK, PRN
  3. CINNAMON. [Concomitant]
     Active Substance: CINNAMON
     Dosage: UNK UNK, BID
  4. LANTUS [Concomitant]
     Active Substance: INSULIN GLARGINE
     Dosage: 35 U, QD
  5. LANTUS [Concomitant]
     Active Substance: INSULIN GLARGINE
     Dosage: 30 U, UNK
     Route: 058
     Dates: start: 20120912
  6. HUMALOG [Suspect]
     Active Substance: INSULIN LISPRO
     Indication: TYPE 2 DIABETES MELLITUS
     Dosage: UNK UNK, PRN

REACTIONS (5)
  - Weight decreased [Unknown]
  - Feeling cold [Unknown]
  - Walking aid user [Not Recovered/Not Resolved]
  - Cold sweat [Unknown]
  - Blood glucose decreased [Unknown]
